FAERS Safety Report 13564775 (Version 1)
Quarter: 2017Q2

REPORT INFORMATION
  Report Type: Other
  Country: US (occurrence: US)
  Receive Date: 20170519
  Receipt Date: 20170519
  Transmission Date: 20170830
  Serious: Yes (Other)
  Sender: FDA-Public Use
  Company Number: US-SHIRE-US201708086

PATIENT
  Age: 53 Year
  Sex: Female

DRUGS (5)
  1. CALCITRIOLUM [Concomitant]
     Indication: PRODUCT USED FOR UNKNOWN INDICATION
     Dosage: UNK, UNKNOWN
     Route: 065
  2. CALCIUM [Concomitant]
     Active Substance: CALCIUM
     Dosage: UNK UNK, UNKNOWN (8000 DOSE BEFORE NATPARA)
     Route: 065
  3. NATPARA (PARATHYROID HORMONE) [Suspect]
     Active Substance: PARATHYROID HORMONE
     Indication: HYPOPARATHYROIDISM
     Dosage: 100 ?G, 1X/DAY:QD
     Route: 058
     Dates: start: 20151009
  4. CALCIUM [Concomitant]
     Active Substance: CALCIUM
     Dosage: UNK
     Route: 065
  5. CALCIUM [Concomitant]
     Active Substance: CALCIUM
     Indication: PRODUCT USED FOR UNKNOWN INDICATION
     Dosage: UNK, UNKNOWN (800 DOSE WITH NATPARA)
     Route: 065

REACTIONS (4)
  - Blood calcium decreased [Unknown]
  - Weight decreased [Unknown]
  - Impaired gastric emptying [Unknown]
  - Urine calcium increased [Unknown]

NARRATIVE: CASE EVENT DATE: 2016
